FAERS Safety Report 11119838 (Version 5)
Quarter: 2015Q3

REPORT INFORMATION
  Report Type: Spontaneous
  Country: JP (occurrence: JP)
  Receive Date: 20150518
  Receipt Date: 20150728
  Transmission Date: 20151125
  Serious: Yes (Hospitalization, Other)
  Sender: FDA-Public Use
  Company Number: JP-ASTELLAS-2015JP010151

PATIENT
  Age: 53 Year
  Sex: Male
  Weight: 59 kg

DRUGS (2)
  1. PROTOPIC [Suspect]
     Active Substance: TACROLIMUS
     Indication: LICHEN PLANUS
     Dosage: 0.08 G, TWICE DAILY
     Dates: start: 20140205, end: 20140530
  2. PROPETO [Concomitant]
     Indication: LIP DRY
     Dosage: 0.08 G, 3 OR 4 TIMES/DAY
     Dates: start: 20140205

REACTIONS (2)
  - Squamous cell carcinoma of skin [Recovering/Resolving]
  - Off label use [Unknown]

NARRATIVE: CASE EVENT DATE: 20140205
